FAERS Safety Report 8389007-X (Version None)
Quarter: 2012Q2

REPORT INFORMATION
  Report Type: 
  Country: None (occurrence: None)
  Receive Date: 20120528
  Receipt Date: 20120523
  Transmission Date: 20120825
  Serious: No
  Sender: FDA-Public Use
  Company Number: US-PFIZER INC-2012125663

PATIENT
  Sex: Female

DRUGS (1)
  1. SUTENT [Suspect]
     Indication: RENAL NEOPLASM
     Dosage: 12.5 MG, UNK
     Dates: start: 20110131, end: 20120418

REACTIONS (1)
  - FATIGUE [None]
